FAERS Safety Report 7951530-7 (Version None)
Quarter: 2011Q4

REPORT INFORMATION
  Report Type: 
  Country: None (occurrence: None)
  Receive Date: 20111201
  Receipt Date: 20111124
  Transmission Date: 20120403
  Serious: Yes (Hospitalization, Other)
  Sender: FDA-Public Use
  Company Number: GB-JNJFOC-20111008517

PATIENT
  Age: 44 Year
  Sex: Male

DRUGS (2)
  1. HALOPERIDOL [Suspect]
     Indication: PRODUCT USED FOR UNKNOWN INDICATION
     Route: 065
     Dates: start: 20110916, end: 20110923
  2. BENDROFLUMETHIAZIDE [Concomitant]
     Indication: PRODUCT USED FOR UNKNOWN INDICATION
     Route: 065

REACTIONS (7)
  - CONVULSION [None]
  - PSYCHOTIC DISORDER [None]
  - NEUTROPENIA [None]
  - NEUROLEPTIC MALIGNANT SYNDROME [None]
  - EXTRAPYRAMIDAL DISORDER [None]
  - SUICIDAL IDEATION [None]
  - THROMBOCYTOPENIA [None]
